FAERS Safety Report 23245539 (Version 1)
Quarter: 2023Q4

REPORT INFORMATION
  Report Type: Spontaneous
  Country: US (occurrence: US)
  Receive Date: 20231130
  Receipt Date: 20231130
  Transmission Date: 20240110
  Serious: Yes (Hospitalization, Other)
  Sender: FDA-Public Use
  Company Number: US-ADVANZ PHARMA-202311010765

PATIENT

DRUGS (1)
  1. ZONISAMIDE [Suspect]
     Active Substance: ZONISAMIDE
     Indication: Temporal lobe epilepsy
     Dosage: UNK

REACTIONS (2)
  - Renal tubular acidosis [Recovered/Resolved]
  - Hypokalaemia [Recovered/Resolved]
